FAERS Safety Report 4373290-1 (Version None)
Quarter: 2004Q2

REPORT INFORMATION
  Report Type: 
  Country: None (occurrence: None)
  Receive Date: 20040603
  Receipt Date: 20040514
  Transmission Date: 20050107
  Serious: Yes (Hospitalization, Other)
  Sender: FDA-Public Use
  Company Number: USA040567578

PATIENT
  Age: 28 Year
  Sex: Male
  Weight: 100 kg

DRUGS (1)
  1. HUMALOG MIX 75/25 [Suspect]
     Indication: DIABETES MELLITUS
     Dosage: 40 U/2 DAY
     Dates: start: 20040101

REACTIONS (6)
  - BLOOD GLUCOSE INCREASED [None]
  - INJECTION SITE BURNING [None]
  - INJECTION SITE HAEMORRHAGE [None]
  - INJECTION SITE STINGING [None]
  - NASOPHARYNGITIS [None]
  - PAIN IN EXTREMITY [None]
